FAERS Safety Report 20724152 (Version 1)
Quarter: 2022Q2

REPORT INFORMATION
  Report Type: Spontaneous
  Country: US (occurrence: US)
  Receive Date: 20220419
  Receipt Date: 20220419
  Transmission Date: 20220721
  Serious: Yes (Other)
  Sender: FDA-Public Use
  Company Number: US-SA-SAC20220413001433

PATIENT
  Age: 45 Year
  Sex: Female

DRUGS (1)
  1. ZANTAC [Suspect]
     Active Substance: RANITIDINE HYDROCHLORIDE
     Indication: Gastric ulcer
     Dosage: UNK, QD
     Dates: start: 199001, end: 201112

REACTIONS (6)
  - Breast cancer female [Unknown]
  - Lung neoplasm malignant [Unknown]
  - Ovarian cancer [Unknown]
  - Throat cancer [Unknown]
  - Nasal cavity cancer [Unknown]
  - Oesophageal carcinoma [Unknown]

NARRATIVE: CASE EVENT DATE: 20120101
